FAERS Safety Report 8763411 (Version 3)
Quarter: 2013Q4

REPORT INFORMATION
  Report Type: Report from Study
  Country: JP (occurrence: JP)
  Receive Date: 20120831
  Receipt Date: 20131108
  Transmission Date: 20140711
  Serious: Yes (Death, Life-Threatening)
  Sender: FDA-Public Use
  Company Number: JP-MERCK-2012SP020431

PATIENT
  Sex: Male
  Weight: 54 kg

DRUGS (10)
  1. TEMOZOLOMIDE [Suspect]
     Indication: GLIOBLASTOMA MULTIFORME
     Dosage: UNK
     Route: 048
     Dates: start: 20110420, end: 20110430
  2. TEMODAL [Suspect]
     Indication: GLIOBLASTOMA MULTIFORME
     Dosage: 120 MG/M2, QD
     Route: 041
     Dates: start: 20110704, end: 20110708
  3. TEMODAL [Suspect]
     Dosage: 240 MG/M2, QD
     Route: 041
     Dates: start: 20110802, end: 20110806
  4. TEMODAL [Suspect]
     Dosage: 300 MG/M2, QD
     Route: 041
     Dates: start: 20110830, end: 20110903
  5. TEMODAL [Suspect]
     Dosage: 300 MG/M2, QD
     Route: 041
     Dates: start: 20110927, end: 20111001
  6. MYONAL [Suspect]
     Dosage: UNK
     Route: 048
  7. MYSLEE [Suspect]
     Route: 048
  8. LOXONIN [Suspect]
     Route: 048
  9. MUCOSTA [Suspect]
     Route: 048
  10. UBRETID [Suspect]
     Route: 048

REACTIONS (2)
  - Toxic epidermal necrolysis [Recovered/Resolved]
  - Disease progression [Fatal]
